FAERS Safety Report 4366100-X (Version None)
Quarter: 2004Q2

REPORT INFORMATION
  Report Type: 
  Country: None (occurrence: None)
  Receive Date: 20040524
  Receipt Date: 20040513
  Transmission Date: 20050107
  Serious: Yes (Death)
  Sender: FDA-Public Use
  Company Number: 2004213791IN

PATIENT
  Age: 65 Year
  Sex: Male
  Weight: 60 kg

DRUGS (4)
  1. FRAGMIN [Suspect]
     Indication: CEREBRAL ARTERY THROMBOSIS
     Dosage: 5000 IU, QD, SUBCUTANEOUS
     Route: 058
     Dates: start: 20040420
  2. PIRACETAM (PIRACETAM) [Suspect]
  3. IMDUR [Suspect]
  4. TRIMETAZIDINE DIHYDROCHLORIDE (TRIMETAZIDINE HYDROCHLORIDE) 20MG [Suspect]

REACTIONS (3)
  - DYSPNOEA [None]
  - LEFT VENTRICULAR FAILURE [None]
  - PULMONARY OEDEMA [None]
